FAERS Safety Report 4777266-1 (Version None)
Quarter: 2005Q3

REPORT INFORMATION
  Report Type: 
  Country: None (occurrence: None)
  Receive Date: 20050915
  Receipt Date: 20050831
  Transmission Date: 20060218
  Serious: Yes (Hospitalization)
  Sender: FDA-Public Use
  Company Number: 2005PV001262

PATIENT
  Age: 57 Year
  Sex: Female
  Weight: 138.3471 kg

DRUGS (15)
  1. BYETTA [Suspect]
     Indication: DIABETES MELLITUS NON-INSULIN-DEPENDENT
     Dosage: SEE IMAGE
     Route: 058
     Dates: start: 20050701, end: 20050808
  2. BYETTA [Suspect]
     Indication: DIABETES MELLITUS NON-INSULIN-DEPENDENT
     Dosage: SEE IMAGE
     Route: 058
     Dates: start: 20050808, end: 20050816
  3. GLUCOPHAGE [Concomitant]
  4. SANDOSTATIN [Concomitant]
  5. NORVASC [Concomitant]
  6. BUMEX [Concomitant]
  7. ALACTONE [Concomitant]
  8. DIOVAN [Concomitant]
  9. CLONIDINE [Concomitant]
  10. ALLEGRA [Concomitant]
  11. ULTRAM [Concomitant]
  12. ZOLOFT [Concomitant]
  13. COREG [Concomitant]
  14. ASPIRIN [Concomitant]
  15. AVANDIA [Concomitant]

REACTIONS (4)
  - ANGIONEUROTIC OEDEMA [None]
  - ARTHRALGIA [None]
  - DIZZINESS [None]
  - HYPERSENSITIVITY [None]
